FAERS Safety Report 18996098 (Version 5)
Quarter: 2021Q3

REPORT INFORMATION
  Report Type: Spontaneous
  Country: US (occurrence: US)
  Receive Date: 20210311
  Receipt Date: 20210810
  Transmission Date: 20211014
  Serious: Yes (Other)
  Sender: FDA-Public Use
  Company Number: US-STRONGBRIDGE BIOPHARMA-2021-STR-000069

PATIENT
  Sex: Male

DRUGS (5)
  1. KEVEYIS [Suspect]
     Active Substance: DICHLORPHENAMIDE
     Indication: FAMILIAL PERIODIC PARALYSIS
     Dosage: 50 MG, QD
     Route: 048
  2. KEVEYIS [Suspect]
     Active Substance: DICHLORPHENAMIDE
     Dosage: 50 MG, BID
     Route: 048
  3. KEVEYIS [Suspect]
     Active Substance: DICHLORPHENAMIDE
     Dosage: 50MG IN THE MORNING AND 50MG LATER IF SYMPTOMS PERSIST
     Route: 048
  4. KEVEYIS [Suspect]
     Active Substance: DICHLORPHENAMIDE
     Dosage: 50 MG, BID
     Route: 048
  5. KEVEYIS [Suspect]
     Active Substance: DICHLORPHENAMIDE
     Dosage: 50 MG, QD
     Route: 048
     Dates: start: 20200512

REACTIONS (11)
  - Depressed mood [Unknown]
  - Mental disorder [Unknown]
  - Disorganised speech [Unknown]
  - Logorrhoea [Unknown]
  - Abnormal behaviour [Unknown]
  - Muscular weakness [Unknown]
  - Memory impairment [Unknown]
  - Intentional product use issue [Unknown]
  - Aggression [Unknown]
  - Disturbance in attention [Unknown]
  - Feeling abnormal [Unknown]
